FAERS Safety Report 20952898 (Version 1)
Quarter: 2022Q2

REPORT INFORMATION
  Report Type: Spontaneous
  Country: GB (occurrence: GB)
  Receive Date: 20220613
  Receipt Date: 20220613
  Transmission Date: 20220720
  Serious: Yes (Other)
  Sender: FDA-Public Use
  Company Number: GB-BRISTOL-MYERS SQUIBB COMPANY-2022-046580

PATIENT
  Age: 53 Year
  Sex: Male
  Weight: 87.4 kg

DRUGS (2)
  1. PACLITAXEL [Suspect]
     Active Substance: PACLITAXEL
     Indication: Anal cancer
     Dosage: DURATION: 4 MONTHS
     Route: 065
     Dates: start: 202111, end: 202203
  2. CARBOPLATIN [Suspect]
     Active Substance: CARBOPLATIN
     Indication: Anal cancer
     Dosage: DOSE : UNAVAILABLE, FREQUENCY: UNAVAILABLE, DURATION: 4 MONTHS
     Route: 065
     Dates: start: 202111, end: 202203

REACTIONS (2)
  - Neurotoxicity [Unknown]
  - Intentional product use issue [Unknown]
